FAERS Safety Report 7563154-4 (Version None)
Quarter: 2011Q2

REPORT INFORMATION
  Report Type: 
  Country: None (occurrence: None)
  Receive Date: 20110622
  Receipt Date: 20110614
  Transmission Date: 20111010
  Serious: Yes (Hospitalization, Other)
  Sender: FDA-Public Use
  Company Number: MX-SANOFI-AVENTIS-2011SA037544

PATIENT
  Age: 83 Year
  Sex: Female

DRUGS (3)
  1. INSULIN GLARGINE [Suspect]
     Indication: TYPE 2 DIABETES MELLITUS
     Route: 058
     Dates: start: 20090101, end: 20101101
  2. INSULIN GLARGINE [Suspect]
     Route: 058
     Dates: start: 20110501
  3. INSULIN GLARGINE [Suspect]
     Route: 058
     Dates: start: 20101101, end: 20110301

REACTIONS (4)
  - FACIAL PAIN [None]
  - HYPERGLYCAEMIA [None]
  - INFLAMMATION [None]
  - LUDWIG ANGINA [None]
